FAERS Safety Report 16041498 (Version 1)
Quarter: 2019Q1

REPORT INFORMATION
  Report Type: Spontaneous
  Country: US (occurrence: US)
  Receive Date: 20190306
  Receipt Date: 20190306
  Transmission Date: 20190418
  Serious: No
  Sender: FDA-Public Use
  Company Number: US-AKORN PHARMACEUTICALS-2019AKN00131

PATIENT
  Sex: Male
  Weight: 75.28 kg

DRUGS (2)
  1. MYORISAN [Suspect]
     Active Substance: ISOTRETINOIN
     Indication: ACNE
     Dosage: 20 MG, 1X/DAY
     Route: 048
     Dates: start: 20181110, end: 20190116
  2. LORATADINE. [Concomitant]
     Active Substance: LORATADINE
     Dosage: 10 MG, 1X/DAY

REACTIONS (1)
  - Food allergy [Unknown]
